FAERS Safety Report 4727494-6 (Version None)
Quarter: 2005Q3

REPORT INFORMATION
  Report Type: 
  Country: None (occurrence: None)
  Receive Date: 20050728
  Receipt Date: 20050721
  Transmission Date: 20060218
  Serious: Yes (Other)
  Sender: FDA-Public Use
  Company Number: GB-ROCHE-411674

PATIENT
  Age: 29 Year
  Sex: Female

DRUGS (2)
  1. PEGASYS [Suspect]
     Indication: HEPATITIS C
     Route: 065
     Dates: start: 20041031, end: 20050415
  2. COPEGUS [Concomitant]
     Indication: HEPATITIS C
     Route: 065

REACTIONS (1)
  - LYMPHADENOPATHY [None]
